FAERS Safety Report 25575116 (Version 2)
Quarter: 2025Q3

REPORT INFORMATION
  Report Type: Report from Study
  Country: JO (occurrence: JO)
  Receive Date: 20250718
  Receipt Date: 20250808
  Transmission Date: 20251021
  Serious: Yes (Other)
  Sender: EMD SERONO INC
  Company Number: JO-Merck Healthcare KGaA-2025035285

PATIENT
  Age: 44 Year
  Sex: Male

DRUGS (1)
  1. REBIF [Suspect]
     Active Substance: INTERFERON BETA-1A
     Indication: Multiple sclerosis
     Dates: start: 20100101

REACTIONS (3)
  - Cataract [Unknown]
  - Fatigue [Recovering/Resolving]
  - Hypoaesthesia [Recovering/Resolving]
